FAERS Safety Report 17999956 (Version 1)
Quarter: 2020Q3

REPORT INFORMATION
  Report Type: Spontaneous
  Country: US (occurrence: US)
  Receive Date: 20200709
  Receipt Date: 20200709
  Transmission Date: 20201103
  Serious: Yes (Hospitalization)
  Sender: FDA-Public Use
  Company Number: US-ROCHE-2638002

PATIENT
  Sex: Male

DRUGS (1)
  1. ROZLYTREK [Suspect]
     Active Substance: ENTRECTINIB
     Indication: TONSIL CANCER
     Route: 065

REACTIONS (4)
  - Dyspnoea [Unknown]
  - Off label use [Unknown]
  - Atrial fibrillation [Unknown]
  - Intentional product use issue [Unknown]
